FAERS Safety Report 7582323-0 (Version None)
Quarter: 2011Q2

REPORT INFORMATION
  Report Type: 
  Country: None (occurrence: None)
  Receive Date: 20110630
  Receipt Date: 20110617
  Transmission Date: 20111010
  Serious: Yes (Hospitalization, Disabling)
  Sender: FDA-Public Use
  Company Number: ES-JNJFOC-20110603439

PATIENT
  Age: 77 Year
  Sex: Male

DRUGS (6)
  1. NORVIR [Interacting]
     Indication: HIV INFECTION
     Route: 048
     Dates: start: 20090801
  2. ASPIRIN [Concomitant]
     Indication: ACUTE MYOCARDIAL INFARCTION
     Route: 048
     Dates: start: 20091228
  3. OMEPRAZOLE [Concomitant]
     Indication: ACUTE MYOCARDIAL INFARCTION
     Route: 048
     Dates: start: 20091228
  4. PREZISTA [Suspect]
     Indication: HIV INFECTION
     Route: 048
     Dates: start: 20090801
  5. CLOPIDOGREL [Concomitant]
     Indication: ACUTE MYOCARDIAL INFARCTION
     Route: 048
     Dates: start: 20091228
  6. ATORVASTATIN [Interacting]
     Indication: ACUTE MYOCARDIAL INFARCTION
     Route: 048
     Dates: start: 20091228, end: 20100909

REACTIONS (2)
  - MYOPATHY [None]
  - DRUG INTERACTION [None]
